FAERS Safety Report 16485835 (Version 1)
Quarter: 2019Q2

REPORT INFORMATION
  Report Type: Spontaneous
  Country: US (occurrence: US)
  Receive Date: 20190627
  Receipt Date: 20190627
  Transmission Date: 20190711
  Serious: No
  Sender: FDA-Public Use
  Company Number: US-CELGENEUS-USA-20190607998

PATIENT
  Sex: Female

DRUGS (1)
  1. POMALYST [Suspect]
     Active Substance: POMALIDOMIDE
     Indication: PLASMA CELL MYELOMA
     Dosage: 4 MILLIGRAM
     Route: 048
     Dates: start: 20190523

REACTIONS (6)
  - Muscular weakness [Unknown]
  - Fatigue [Unknown]
  - Hypotension [Unknown]
  - Dyspnoea exertional [Unknown]
  - Hyperhidrosis [Unknown]
  - Burning sensation [Unknown]

NARRATIVE: CASE EVENT DATE: 2019
